FAERS Safety Report 16200772 (Version 1)
Quarter: 2019Q2

REPORT INFORMATION
  Report Type: Spontaneous
  Country: US (occurrence: US)
  Receive Date: 20190416
  Receipt Date: 20190416
  Transmission Date: 20190711
  Serious: No
  Sender: FDA-Public Use
  Company Number: US-BION-007604

PATIENT
  Age: 17 Year
  Sex: Female

DRUGS (7)
  1. AUGMENTIN [Suspect]
     Active Substance: AMOXICILLIN\CLAVULANATE POTASSIUM
     Indication: PRODUCT USED FOR UNKNOWN INDICATION
  2. IBUPROFEN BIONFARMA [Suspect]
     Active Substance: IBUPROFEN
     Indication: PRODUCT USED FOR UNKNOWN INDICATION
  3. CLARITIN [Suspect]
     Active Substance: LORATADINE
     Indication: PRODUCT USED FOR UNKNOWN INDICATION
  4. SUMATRIPTAN. [Concomitant]
     Active Substance: SUMATRIPTAN
  5. ZOFRAN [Concomitant]
     Active Substance: ONDANSETRON HYDROCHLORIDE
  6. ALEVE GELCAPS [Suspect]
     Active Substance: NAPROXEN SODIUM
     Indication: PRODUCT USED FOR UNKNOWN INDICATION
  7. ESTRADIOL. [Concomitant]
     Active Substance: ESTRADIOL

REACTIONS (3)
  - Urticaria [Unknown]
  - Drug hypersensitivity [Unknown]
  - Drug eruption [Unknown]
